FAERS Safety Report 10011950 (Version 1)
Quarter: 2014Q1

REPORT INFORMATION
  Report Type: Spontaneous
  Country: BR (occurrence: BR)
  Receive Date: 20140314
  Receipt Date: 20140314
  Transmission Date: 20141002
  Serious: Yes (Death)
  Sender: FDA-Public Use
  Company Number: PHHY2014BR031062

PATIENT
  Sex: Male

DRUGS (1)
  1. CATAFLAM [Suspect]
     Indication: PAIN
     Dosage: UNK UKN, UNK

REACTIONS (2)
  - Death [Fatal]
  - Pain [Unknown]
